FAERS Safety Report 14982807 (Version 1)
Quarter: 2018Q2

REPORT INFORMATION
  Report Type: Report from Study
  Country: US (occurrence: US)
  Receive Date: 20180607
  Receipt Date: 20180607
  Transmission Date: 20180711
  Serious: Yes (Other)
  Sender: FDA-Public Use
  Company Number: US-ROCHE-2134981

PATIENT
  Sex: Female

DRUGS (12)
  1. WARFARIN [Suspect]
     Active Substance: WARFARIN
     Indication: THROMBOSIS PROPHYLAXIS
     Route: 065
  2. WARFARIN [Suspect]
     Active Substance: WARFARIN
     Indication: EMBOLISM
  3. FONDAPARINUX [Suspect]
     Active Substance: FONDAPARINUX
     Indication: THROMBOSIS PROPHYLAXIS
     Route: 065
  4. ALTEPLASE. [Suspect]
     Active Substance: ALTEPLASE
     Indication: THROMBOSIS PROPHYLAXIS
     Route: 065
  5. ALTEPLASE. [Suspect]
     Active Substance: ALTEPLASE
     Indication: EMBOLISM
  6. ENOXAPARIN [Suspect]
     Active Substance: ENOXAPARIN
     Indication: EMBOLISM
  7. ENOXAPARIN [Suspect]
     Active Substance: ENOXAPARIN
     Indication: THROMBOSIS PROPHYLAXIS
     Route: 065
  8. ASPIRIN. [Suspect]
     Active Substance: ASPIRIN
     Indication: EMBOLISM
  9. FONDAPARINUX [Suspect]
     Active Substance: FONDAPARINUX
     Indication: EMBOLISM
  10. ASPIRIN. [Suspect]
     Active Substance: ASPIRIN
     Indication: THROMBOSIS PROPHYLAXIS
     Route: 065
  11. HEPARIN [Suspect]
     Active Substance: HEPARIN SODIUM
     Indication: THROMBOSIS PROPHYLAXIS
     Route: 065
  12. HEPARIN [Suspect]
     Active Substance: HEPARIN SODIUM
     Indication: EMBOLISM

REACTIONS (3)
  - Anaemia [Unknown]
  - Haemorrhagic ovarian cyst [Recovered/Resolved]
  - Menorrhagia [Unknown]
